APPROVED DRUG PRODUCT: RANOLAZINE
Active Ingredient: RANOLAZINE
Strength: 1GM
Dosage Form/Route: TABLET, EXTENDED RELEASE;ORAL
Application: A211291 | Product #002
Applicant: CIPLA LTD
Approved: May 28, 2019 | RLD: No | RS: No | Type: DISCN